FAERS Safety Report 9562617 (Version 2)
Quarter: 2013Q3

REPORT INFORMATION
  Report Type: Spontaneous
  Country: PT (occurrence: PT)
  Receive Date: 20130927
  Receipt Date: 20130927
  Transmission Date: 20140515
  Serious: Yes (Death, Hospitalization)
  Sender: FDA-Public Use
  Company Number: PT-CUBIST PHARMACEUTICALS, INC.-2013CBST000661

PATIENT
  Sex: 0

DRUGS (2)
  1. CUBICIN [Suspect]
     Indication: ENTEROCOCCAL INFECTION
     Dosage: 6 MG/KG, UNK
     Route: 065
  2. CUBICIN [Suspect]
     Indication: OFF LABEL USE
     Dosage: 8 MG/KG, UNK
     Route: 065

REACTIONS (3)
  - Malignant neoplasm progression [Fatal]
  - Septic shock [Unknown]
  - Drug ineffective [Recovered/Resolved]
